FAERS Safety Report 4733523-6 (Version None)
Quarter: 2005Q3

REPORT INFORMATION
  Report Type: 
  Country: None (occurrence: None)
  Receive Date: 20050729
  Receipt Date: 20050714
  Transmission Date: 20060218
  Serious: Yes (Other)
  Sender: FDA-Public Use
  Company Number: 2005-BP-11789RO

PATIENT
  Age: 68 Year
  Sex: Female

DRUGS (2)
  1. LEUCOVORIN CALCIUM [Suspect]
     Indication: RECTAL CANCER
     Dosage: 25 MG, TID, PO
     Route: 048
     Dates: start: 20040712, end: 20040726
  2. UFT (TEGAFUR + URACIL) (TEGAFUR URACIL) [Suspect]
     Indication: RECTAL CANCER
     Dosage: 2.5 G, PO
     Route: 048
     Dates: start: 20040712, end: 20040726

REACTIONS (2)
  - DEHYDRATION [None]
  - DIARRHOEA [None]
